FAERS Safety Report 22128995 (Version 2)
Quarter: 2024Q2

REPORT INFORMATION
  Report Type: Report from Study
  Country: CO (occurrence: CO)
  Receive Date: 20230323
  Receipt Date: 20240612
  Transmission Date: 20240716
  Serious: Yes (Other)
  Sender: FDA-Public Use
  Company Number: CO-ABBVIE-4305788

PATIENT
  Age: 59 Year
  Sex: Female
  Weight: 71 kg

DRUGS (4)
  1. SKYRIZI [Suspect]
     Active Substance: RISANKIZUMAB-RZAA
     Indication: Psoriasis
     Dosage: FORM STRENGTH 75 MILLIGRAMS
     Route: 058
     Dates: start: 20220510
  2. Vitasol [Concomitant]
     Indication: Nutritional supplementation
     Route: 048
  3. VITAMINS [Concomitant]
     Active Substance: VITAMINS
     Indication: Nutritional supplementation
     Dosage: 1 DOSAGE FORMS
     Route: 048
  4. OMEPRAZOLE [Concomitant]
     Active Substance: DONEPEZIL HYDROCHLORIDE\OMEPRAZOLE\OMEPRAZOLE MAGNESIUM
     Indication: Gastritis
     Dosage: NOT REPORTED
     Route: 048

REACTIONS (17)
  - Glaucoma [Unknown]
  - Headache [Not Recovered/Not Resolved]
  - Influenza like illness [Recovered/Resolved]
  - Dyspepsia [Recovered/Resolved]
  - Chronic gastritis [Recovered/Resolved]
  - Malaise [Recovered/Resolved]
  - Discouragement [Unknown]
  - Feeling cold [Recovered/Resolved]
  - Mood altered [Recovered/Resolved]
  - Fall [Unknown]
  - Listless [Unknown]
  - Depressed mood [Unknown]
  - Visual impairment [Not Recovered/Not Resolved]
  - Discouragement [Recovered/Resolved]
  - Dizziness [Not Recovered/Not Resolved]
  - Nasopharyngitis [Recovered/Resolved]
  - Discomfort [Recovered/Resolved]

NARRATIVE: CASE EVENT DATE: 20230105
